FAERS Safety Report 14237342 (Version 4)
Quarter: 2018Q1

REPORT INFORMATION
  Report Type: Spontaneous
  Country: US (occurrence: US)
  Receive Date: 20171129
  Receipt Date: 20180208
  Transmission Date: 20180508
  Serious: Yes (Other)
  Sender: FDA-Public Use
  Company Number: US-PURDUE-USA-2017-0140817

PATIENT
  Sex: Female

DRUGS (1)
  1. HYSINGLA ER [Suspect]
     Active Substance: HYDROCODONE BITARTRATE
     Indication: PAIN
     Dosage: UNK MG, Q24H
     Route: 048

REACTIONS (13)
  - Spinal fracture [Unknown]
  - Emergency care [Unknown]
  - Dyspepsia [Unknown]
  - Malaise [Unknown]
  - Scar [Unknown]
  - Unevaluable event [Unknown]
  - Fall [Unknown]
  - Bedridden [Not Recovered/Not Resolved]
  - Drug ineffective [Unknown]
  - Joint dislocation [Unknown]
  - Tooth fracture [Unknown]
  - Surgical failure [Unknown]
  - Mobility decreased [Unknown]

NARRATIVE: CASE EVENT DATE: 2016
